FAERS Safety Report 6409451-7 (Version None)
Quarter: 2009Q4

REPORT INFORMATION
  Report Type: 
  Country: None (occurrence: None)
  Receive Date: 20091016
  Receipt Date: 20091008
  Transmission Date: 20100525
  Serious: Yes (Hospitalization)
  Sender: FDA-Public Use
  Company Number: 09US004284

PATIENT
  Age: 3 Year
  Sex: Male
  Weight: 24.9 kg

DRUGS (1)
  1. ASPIRIN [Suspect]
     Indication: ACCIDENTAL DRUG INTAKE BY CHILD
     Dosage: SINGLE, ORAL
     Route: 048
     Dates: start: 20091008, end: 20091008

REACTIONS (4)
  - ACCIDENTAL DRUG INTAKE BY CHILD [None]
  - ACCIDENTAL OVERDOSE [None]
  - HYPERHIDROSIS [None]
  - PALLOR [None]
